FAERS Safety Report 22943273 (Version 2)
Quarter: 2023Q4

REPORT INFORMATION
  Report Type: Spontaneous
  Country: AR (occurrence: AR)
  Receive Date: 20230914
  Receipt Date: 20231106
  Transmission Date: 20240110
  Serious: Yes (Death, Hospitalization)
  Sender: FDA-Public Use
  Company Number: AR-PFIZER INC-202300296294

PATIENT
  Age: 8 Year
  Sex: Male

DRUGS (1)
  1. GENOTROPIN [Suspect]
     Active Substance: SOMATROPIN
     Indication: Growth hormone deficiency
     Dosage: 0.8 MG, DAILY( 0.56IU/KG/WEEK - 0.18MG/KG/WEEK)
     Dates: start: 20220914

REACTIONS (4)
  - Cardio-respiratory arrest [Fatal]
  - Pyrexia [Fatal]
  - Vomiting [Fatal]
  - Pain in extremity [Fatal]

NARRATIVE: CASE EVENT DATE: 20230902
